FAERS Safety Report 14973543 (Version 1)
Quarter: 2018Q2

REPORT INFORMATION
  Report Type: Spontaneous
  Country: IR (occurrence: IR)
  Receive Date: 20180605
  Receipt Date: 20180605
  Transmission Date: 20180711
  Serious: Yes (Other)
  Sender: FDA-Public Use
  Company Number: IR-DENTSPLY-2018SCDP000176

PATIENT
  Age: 61 Year
  Sex: Female

DRUGS (1)
  1. LIDOCAINE HCL [Suspect]
     Active Substance: LIDOCAINE HYDROCHLORIDE
     Indication: LOCAL ANAESTHESIA
     Dosage: UNK

REACTIONS (3)
  - Pupillary reflex impaired [Recovering/Resolving]
  - Blindness transient [Recovered/Resolved]
  - Cystoid macular oedema [Unknown]
